FAERS Safety Report 22105491 (Version 1)
Quarter: 2023Q1

REPORT INFORMATION
  Report Type: Spontaneous
  Country: FR (occurrence: FR)
  Receive Date: 20230317
  Receipt Date: 20230317
  Transmission Date: 20230418
  Serious: Yes (Hospitalization, Other)
  Sender: FDA-Public Use
  Company Number: None

PATIENT
  Age: 51 Year
  Sex: Female
  Weight: 53.5 kg

DRUGS (4)
  1. NALMEFENE HYDROCHLORIDE DIHYDRATE [Suspect]
     Active Substance: NALMEFENE HYDROCHLORIDE DIHYDRATE
     Indication: Intentional overdose
     Dosage: OVERDOSE: 252MG
     Route: 048
     Dates: start: 20221025, end: 20221025
  2. CLOBAZAM [Suspect]
     Active Substance: CLOBAZAM
     Indication: Intentional overdose
     Dosage: OVERDOSE: 280MG
     Route: 048
     Dates: start: 20221025, end: 20221025
  3. TRIMEBUTINE [Suspect]
     Active Substance: TRIMEBUTINE
     Indication: Intentional overdose
     Route: 048
     Dates: start: 20221025, end: 20221025
  4. PANTOPRAZOLE [Concomitant]
     Active Substance: PANTOPRAZOLE
     Indication: Intentional overdose
     Route: 048
     Dates: start: 20221025, end: 20221025

REACTIONS (3)
  - Coma [Recovered/Resolved]
  - Poisoning deliberate [Recovered/Resolved]
  - Intentional overdose [Unknown]

NARRATIVE: CASE EVENT DATE: 20221025
